FAERS Safety Report 25764099 (Version 1)
Quarter: 2025Q3

REPORT INFORMATION
  Report Type: Spontaneous
  Country: CN (occurrence: CN)
  Receive Date: 20250905
  Receipt Date: 20250905
  Transmission Date: 20251021
  Serious: Yes (Other)
  Sender: BAXTER
  Company Number: None

PATIENT
  Age: 60 Year
  Sex: Female
  Weight: 52 kg

DRUGS (5)
  1. CYCLOPHOSPHAMIDE [Suspect]
     Active Substance: CYCLOPHOSPHAMIDE
     Indication: HER2 low breast cancer
     Dosage: 790 MG, QD
     Route: 042
     Dates: start: 20250514, end: 20250514
  2. SODIUM CHLORIDE [Suspect]
     Active Substance: SODIUM CHLORIDE
     Dosage: 40 ML, QD WITH CYCLOPHOSPHAMIDE
     Route: 042
     Dates: start: 20250514, end: 20250514
  3. SODIUM CHLORIDE [Suspect]
     Active Substance: SODIUM CHLORIDE
     Dosage: 100 ML, QD WITH EPIRUBICIN
     Route: 041
     Dates: start: 20250514, end: 20250514
  4. EPIRUBICIN [Suspect]
     Active Substance: EPIRUBICIN
     Indication: HER2 low breast cancer
     Dosage: 118 MG, QD
     Route: 041
     Dates: start: 20250514, end: 20250514
  5. PEGYLATED GRANULOCYTE COLONY-STIMULATING FACTOR [Concomitant]
     Active Substance: PEGYLATED GRANULOCYTE COLONY-STIMULATING FACTOR
     Route: 058
     Dates: start: 202505

REACTIONS (3)
  - White blood cell count decreased [Recovering/Resolving]
  - Neutrophil count decreased [Recovering/Resolving]
  - Platelet count decreased [Recovering/Resolving]

NARRATIVE: CASE EVENT DATE: 20250521
